FAERS Safety Report 4288747-1 (Version None)
Quarter: 2004Q1

REPORT INFORMATION
  Report Type: 
  Country: None (occurrence: None)
  Receive Date: 20040205
  Receipt Date: 20040129
  Transmission Date: 20041129
  Serious: Yes (Life-Threatening, Hospitalization)
  Sender: FDA-Public Use
  Company Number: 2004003351

PATIENT
  Age: 73 Year
  Sex: Female

DRUGS (5)
  1. NEURONTIN [Suspect]
     Indication: CONVULSION
     Dosage: 600 MG ORAL
     Route: 048
     Dates: start: 20040113, end: 20040115
  2. CARBAMAZEPINE [Suspect]
     Indication: SIMPLE PARTIAL SEIZURES
     Dosage: 600 MG (BID), ORAL
     Route: 048
     Dates: start: 20031201, end: 20040113
  3. PHENPROCOUMON (PHENPROCOUMON) [Concomitant]
  4. SALUTEC (HYDROCHLOROTHIAZIDE, RAMIPRIL) [Concomitant]
  5. TORSEMIDE [Concomitant]

REACTIONS (3)
  - CROSS SENSITIVITY REACTION [None]
  - DRUG ERUPTION [None]
  - EYELID OEDEMA [None]
